FAERS Safety Report 14401856 (Version 2)
Quarter: 2018Q1

REPORT INFORMATION
  Report Type: Report from Study
  Country: CO (occurrence: CO)
  Receive Date: 20180117
  Receipt Date: 20180206
  Transmission Date: 20180509
  Serious: Yes (Death, Hospitalization, Other)
  Sender: FDA-Public Use
  Company Number: CO-ASTELLAS-2018US002840

PATIENT
  Age: 87 Year
  Sex: Male
  Weight: 65 kg

DRUGS (3)
  1. APIXABAN [Concomitant]
     Active Substance: APIXABAN
     Indication: ANTICOAGULANT THERAPY
     Route: 048
  2. ENZALUTAMIDE [Suspect]
     Active Substance: ENZALUTAMIDE
     Indication: HORMONE-REFRACTORY PROSTATE CANCER
     Route: 048
     Dates: start: 20170701
  3. METOPROLOL. [Concomitant]
     Active Substance: METOPROLOL
     Indication: HYPERTENSION
     Dosage: 2.5 MG, TWICE DAILY (EVERY 12 HRS)
     Route: 048

REACTIONS (12)
  - Death [Fatal]
  - Blood pressure increased [Not Recovered/Not Resolved]
  - Anxiety [Unknown]
  - Faeces discoloured [Not Recovered/Not Resolved]
  - Fall [Unknown]
  - Cognitive disorder [Recovered/Resolved]
  - Hip fracture [Not Recovered/Not Resolved]
  - Feeling of despair [Unknown]
  - Shock [Unknown]
  - Constipation [Recovered/Resolved]
  - Frequent bowel movements [Unknown]
  - Decreased appetite [Not Recovered/Not Resolved]

NARRATIVE: CASE EVENT DATE: 20171230
